FAERS Safety Report 14554583 (Version 1)
Quarter: 2018Q1

REPORT INFORMATION
  Report Type: Spontaneous
  Country: US (occurrence: US)
  Receive Date: 20180218
  Receipt Date: 20180218
  Transmission Date: 20180509
  Serious: Yes (Life-Threatening, Disabling, Other)
  Sender: FDA-Public Use
  Company Number: None

PATIENT
  Age: 39 Year
  Sex: Female
  Weight: 63.9 kg

DRUGS (4)
  1. BURPROPN HYDROCHLORIDE 300 MG [Suspect]
     Active Substance: BUPROPION HYDROCHLORIDE
     Indication: POST-TRAUMATIC STRESS DISORDER
     Dosage: ?          QUANTITY:30 TABLET(S);?
     Route: 048
     Dates: start: 20170929, end: 20180116
  2. KLONOPIN [Concomitant]
     Active Substance: CLONAZEPAM
  3. BURPROPN HYDROCHLORIDE 300 MG [Suspect]
     Active Substance: BUPROPION HYDROCHLORIDE
     Indication: MAJOR DEPRESSION
     Dosage: ?          QUANTITY:30 TABLET(S);?
     Route: 048
     Dates: start: 20170929, end: 20180116
  4. BURPROPN HYDROCHLORIDE 300 MG [Suspect]
     Active Substance: BUPROPION HYDROCHLORIDE
     Indication: ATTENTION DEFICIT/HYPERACTIVITY DISORDER
     Dosage: ?          QUANTITY:30 TABLET(S);?
     Route: 048
     Dates: start: 20170929, end: 20180116

REACTIONS (10)
  - Confusional state [None]
  - Anger [None]
  - Product substitution issue [None]
  - Seizure [None]
  - Lethargy [None]
  - Dry mouth [None]
  - Delusion [None]
  - Panic attack [None]
  - Crying [None]
  - Suicidal ideation [None]

NARRATIVE: CASE EVENT DATE: 20170930
